FAERS Safety Report 4738019-3 (Version None)
Quarter: 2005Q3

REPORT INFORMATION
  Report Type: 
  Country: None (occurrence: None)
  Receive Date: 20050805
  Receipt Date: 20050727
  Transmission Date: 20060218
  Serious: Yes (Hospitalization)
  Sender: FDA-Public Use
  Company Number: FRP05000606

PATIENT
  Age: 85 Year
  Sex: Female

DRUGS (4)
  1. ACTONEL [Suspect]
     Dosage: 35 MG, 1/WEEK, ORAL
     Route: 048
     Dates: start: 20050415
  2. SIMVASTATIN [Concomitant]
  3. RYTHMOL [Concomitant]
  4. RYTHMOL [Concomitant]

REACTIONS (1)
  - RECTAL HAEMORRHAGE [None]
